FAERS Safety Report 8742821 (Version 3)
Quarter: 2012Q4

REPORT INFORMATION
  Report Type: 
  Country: US (occurrence: US)
  Receive Date: 20120824
  Receipt Date: 20121015
  Transmission Date: 20130627
  Serious: Yes (Hospitalization, Other)
  Sender: FDA-Public Use
  Company Number: US-PFIZER INC-2012206013

PATIENT
  Age: 71 Year
  Sex: Male
  Weight: 84.81 kg

DRUGS (11)
  1. TIKOSYN [Suspect]
     Indication: ATRIAL FIBRILLATION
     Dosage: 500 ug, 2x/day
     Dates: start: 20120127
  2. WARFARIN SODIUM [Concomitant]
     Indication: ATRIAL FIBRILLATION
     Dosage: UNK, daily
  3. GABAPENTIN [Concomitant]
     Indication: NEUROPATHY PERIPHERAL
     Dosage: 500 mg, 3x/day
  4. LISINOPRIL [Concomitant]
     Indication: HYPERTENSION
     Dosage: 20 mg, daily
  5. ZOCOR [Concomitant]
     Indication: HYPERLIPIDAEMIA
     Dosage: 10 mg, daily
  6. ZYRTEC [Concomitant]
     Dosage: 10 mg, daily
  7. CELEXA [Concomitant]
     Dosage: 20 mg, daily
  8. ULTRAM [Concomitant]
     Indication: PAIN
     Dosage: 50mg as needed(up to four times a day)
  9. ROBAXIN [Concomitant]
     Indication: MUSCLE SPASMS
     Dosage: 500 mg, daily
  10. PRILOSEC [Concomitant]
     Indication: GASTROOESOPHAGEAL REFLUX DISEASE
     Dosage: 20 mg, daily
  11. TAMSULOSIN HYDROCHLORIDE [Concomitant]
     Indication: BENIGN PROSTATIC HYPERPLASIA
     Dosage: 0.4 mg, daily

REACTIONS (3)
  - Urinary tract infection [Recovering/Resolving]
  - Convulsion [Unknown]
  - Renal disorder [Unknown]
